FAERS Safety Report 8615509-4 (Version None)
Quarter: 2012Q3

REPORT INFORMATION
  Report Type: 
  Country: None (occurrence: None)
  Receive Date: 20120823
  Receipt Date: 20120814
  Transmission Date: 20120928
  Serious: Yes (Other)
  Sender: FDA-Public Use
  Company Number: IT-JNJFOC-20120807608

PATIENT
  Age: 44 Year
  Sex: Male
  Weight: 95 kg

DRUGS (3)
  1. EN [Suspect]
     Indication: PRODUCT USED FOR UNKNOWN INDICATION
     Route: 048
     Dates: start: 20120814, end: 20120814
  2. RISPERDAL [Suspect]
     Indication: PRODUCT USED FOR UNKNOWN INDICATION
     Route: 065
  3. RISPERDAL [Suspect]
     Route: 065
     Dates: start: 20120814, end: 20120814

REACTIONS (4)
  - SELF INJURIOUS BEHAVIOUR [None]
  - TACHYCARDIA [None]
  - MULTIPLE DRUG OVERDOSE [None]
  - HYPOTENSION [None]
